FAERS Safety Report 22368367 (Version 1)
Quarter: 2023Q2

REPORT INFORMATION
  Report Type: Report from Study
  Country: RS (occurrence: RS)
  Receive Date: 20230525
  Receipt Date: 20230525
  Transmission Date: 20230722
  Serious: No
  Sender: FDA-Public Use
  Company Number: RS-009507513-2305SRB008043

PATIENT
  Age: 40 Year
  Sex: Female

DRUGS (1)
  1. LAGEVRIO [Suspect]
     Active Substance: MOLNUPIRAVIR
     Route: 048

REACTIONS (3)
  - Nausea [Unknown]
  - Abdominal symptom [Unknown]
  - Inappropriate schedule of product administration [Unknown]
